FAERS Safety Report 8013361-1 (Version None)
Quarter: 2011Q4

REPORT INFORMATION
  Report Type: 
  Country: None (occurrence: None)
  Receive Date: 20111229
  Receipt Date: 20111227
  Transmission Date: 20120403
  Serious: Yes (Death, Other)
  Sender: FDA-Public Use
  Company Number: PHHY2011PL92197

PATIENT
  Weight: 3.55 kg

DRUGS (8)
  1. UROFOLLITROPIN [Concomitant]
     Route: 064
  2. CHORIONIC GONADOTROPIN [Concomitant]
     Route: 064
  3. ACETYLSALICYLIC ACID SRT [Concomitant]
     Route: 064
  4. LYNESTRENOL [Concomitant]
     Route: 064
  5. TRIPTORELIN [Concomitant]
     Route: 064
  6. NADROPARIN [Concomitant]
     Route: 064
  7. ESTRADIOL [Suspect]
     Route: 064
  8. MENOTROPINS [Concomitant]
     Route: 064

REACTIONS (14)
  - NEOPLASM PROGRESSION [None]
  - CRANIOPHARYNGIOMA [None]
  - TUMOUR NECROSIS [None]
  - RESPIRATORY FAILURE [None]
  - HEPATOBLASTOMA [None]
  - FOETAL EXPOSURE DURING PREGNANCY [None]
  - CIRCULATORY COLLAPSE [None]
  - CARDIO-RESPIRATORY DISTRESS [None]
  - HYDROCEPHALUS [None]
  - JAUNDICE [None]
  - BRAIN HERNIATION [None]
  - HAEMORRHAGE [None]
  - ABDOMINAL DISTENSION [None]
  - CEREBRAL CALCIFICATION [None]
